FAERS Safety Report 9305748 (Version 4)
Quarter: 2014Q1

REPORT INFORMATION
  Report Type: Spontaneous
  Country: AU (occurrence: AU)
  Receive Date: 20130523
  Receipt Date: 20140122
  Transmission Date: 20141002
  Serious: Yes (Other)
  Sender: FDA-Public Use
  Company Number: AU-PFIZER INC-2013151267

PATIENT
  Age: 37 Year
  Sex: Male
  Weight: 61 kg

DRUGS (5)
  1. REVATIO [Suspect]
     Indication: PULMONARY ARTERIAL HYPERTENSION
     Dosage: 20 MG, 3X/DAY
     Route: 048
     Dates: start: 201110, end: 201305
  2. REVATIO [Suspect]
     Dosage: 40 MG, 3X/DAY
     Route: 048
     Dates: start: 201305
  3. BOSENTAN [Concomitant]
     Dosage: 125 MG, 2X/DAY
     Route: 048
     Dates: start: 200906
  4. WARFARIN [Concomitant]
     Indication: PULMONARY ARTERIAL HYPERTENSION
     Dosage: VARIABLE DOSE, DAILY
     Route: 048
  5. FRUSEMIDE [Concomitant]
     Dosage: UNKNOWN DOSE, DAILY

REACTIONS (2)
  - Cyanosis [Recovered/Resolved]
  - Dyspnoea [Recovered/Resolved]
